FAERS Safety Report 8797315 (Version 1)
Quarter: 2012Q4

REPORT INFORMATION
  Report Type: 
  Country: US (occurrence: US)
  Receive Date: 20120920
  Receipt Date: 20120920
  Transmission Date: 20130627
  Serious: Yes (Other)
  Sender: FDA-Public Use
  Company Number: US-JNJFOC-20120905988

PATIENT

DRUGS (12)
  1. DOXORUBICIN [Suspect]
     Indication: MANTLE CELL LYMPHOMA
     Route: 042
  2. DOXORUBICIN [Suspect]
     Indication: MANTLE CELL LYMPHOMA
     Dosage: on day 1 for 4 cycles
     Route: 042
  3. CYCLOPHOSPHAMIDE [Suspect]
     Indication: MANTLE CELL LYMPHOMA
     Dosage: on day 1 for 4 cycles
     Route: 042
  4. CYCLOPHOSPHAMIDE [Suspect]
     Indication: MANTLE CELL LYMPHOMA
     Route: 042
  5. VINCRISTINE [Suspect]
     Indication: MANTLE CELL LYMPHOMA
     Dosage: (maximum dose of 2 mg) on day 1 for 4 cycles
     Route: 042
  6. VINCRISTINE [Suspect]
     Indication: MANTLE CELL LYMPHOMA
     Route: 042
  7. PREDNISONE [Suspect]
     Indication: MANTLE CELL LYMPHOMA
     Dosage: for 5 days with the first dose given before receiving rituximab (on day 1 for 4 cycles)
     Route: 048
  8. PREDNISONE [Suspect]
     Indication: MANTLE CELL LYMPHOMA
     Route: 048
  9. RITUXIMAB [Suspect]
     Indication: MANTLE CELL LYMPHOMA
     Dosage: on day 1 for 4 cycles
     Route: 042
  10. RITUXIMAB [Suspect]
     Indication: MANTLE CELL LYMPHOMA
     Route: 042
  11. ACETAMINOPHEN [Concomitant]
     Indication: PREMEDICATION
     Route: 065
  12. DIPHENHYDRAMINE [Concomitant]
     Indication: PREMEDICATION
     Route: 065

REACTIONS (2)
  - Lung infection [Unknown]
  - Neutropenia [Unknown]
